FAERS Safety Report 4930884-X (Version None)
Quarter: 2006Q1

REPORT INFORMATION
  Report Type: 
  Country: None (occurrence: None)
  Receive Date: 20060227
  Receipt Date: 20060215
  Transmission Date: 20060701
  Serious: Yes (Hospitalization)
  Sender: FDA-Public Use
  Company Number: 2006023027

PATIENT
  Age: 3 Year
  Sex: Male

DRUGS (1)
  1. LISTERINE (MENTHOL, METHYL SALICYLATE, EUCALYPTOL, THYMOL) [Suspect]
     Dosage: ORAL
     Route: 048
     Dates: start: 20060114, end: 20060114

REACTIONS (6)
  - ACCIDENTAL DRUG INTAKE BY CHILD [None]
  - CHEST PAIN [None]
  - COUGH [None]
  - FATIGUE [None]
  - HOUSE DUST ALLERGY [None]
  - TACHYCARDIA [None]
